FAERS Safety Report 4309507-9 (Version None)
Quarter: 2004Q1

REPORT INFORMATION
  Report Type: 
  Country: None (occurrence: None)
  Receive Date: 20040301
  Receipt Date: 20040213
  Transmission Date: 20041129
  Serious: Yes (Hospitalization)
  Sender: FDA-Public Use
  Company Number: 2003IM001156

PATIENT
  Age: 60 Year
  Sex: Male

DRUGS (4)
  1. ADVAFERON (A643_INTERFERON ALFACON-1) [Suspect]
     Indication: HEPATITIS C
     Dosage: 18 MU; QD; SUBCUTANEOUS
     Route: 058
     Dates: start: 20030929
  2. DILTIAZEM HYDROCHLORIDE [Concomitant]
  3. HYDRALAZINE HCL [Concomitant]
  4. TRIPAMIDE [Concomitant]

REACTIONS (1)
  - RENAL DISORDER [None]
